FAERS Safety Report 4360342-5 (Version None)
Quarter: 2004Q2

REPORT INFORMATION
  Report Type: 
  Country: None (occurrence: None)
  Receive Date: 20040514
  Receipt Date: 20040505
  Transmission Date: 20050107
  Serious: Yes (Hospitalization)
  Sender: FDA-Public Use
  Company Number: US-JNJFOC-20040500945

PATIENT
  Age: 67 Year
  Sex: Male
  Weight: 66.4973 kg

DRUGS (7)
  1. RISPERDAL [Suspect]
     Indication: SCHIZOPHRENIA
     Dates: start: 20030611, end: 20040413
  2. OLANZAPINE [Suspect]
     Indication: SCHIZOPHRENIA
     Dates: start: 20030611, end: 20040413
  3. QUETIAPINE (QUETIAPINE) [Suspect]
     Indication: SCHIZOPHRENIA
     Dates: start: 20030611, end: 20040413
  4. TRAZODONE HCL [Concomitant]
  5. MVI (MULTIVITAMINS) [Concomitant]
  6. FESO4 (FERROUS SULFATE) [Concomitant]
  7. CARBAMAZEPINE [Concomitant]

REACTIONS (5)
  - DIABETIC KETOACIDOSIS [None]
  - GASTROINTESTINAL NECROSIS [None]
  - INTESTINAL ISCHAEMIA [None]
  - MENTAL STATUS CHANGES [None]
  - PNEUMONIA [None]
